FAERS Safety Report 7543914-6 (Version None)
Quarter: 2011Q2

REPORT INFORMATION
  Report Type: 
  Country: None (occurrence: None)
  Receive Date: 20110613
  Receipt Date: 20110601
  Transmission Date: 20111010
  Serious: Yes (Other)
  Sender: FDA-Public Use
  Company Number: US-GENENTECH-317384

PATIENT
  Sex: Male
  Weight: 97.506 kg

DRUGS (3)
  1. ADVAIR DISKUS 100/50 [Concomitant]
     Indication: PRODUCT USED FOR UNKNOWN INDICATION
     Dosage: UNK
     Dates: end: 20110201
  2. XOLAIR [Suspect]
     Indication: ASTHMA
     Dosage: 375 MG, Q2W
     Route: 058
     Dates: end: 20110201
  3. SPIRIVA [Concomitant]
     Indication: PRODUCT USED FOR UNKNOWN INDICATION
     Dosage: UNK
     Dates: start: 20110201

REACTIONS (1)
  - ORAL CANDIDIASIS [None]
